FAERS Safety Report 25937039 (Version 3)
Quarter: 2025Q4

REPORT INFORMATION
  Report Type: Spontaneous
  Country: US (occurrence: US)
  Receive Date: 20251017
  Receipt Date: 20251210
  Transmission Date: 20260118
  Serious: Yes (Other)
  Sender: ELI LILLY AND COMPANY
  Company Number: US-ELI_LILLY_AND_COMPANY-US202510006202

PATIENT
  Age: 82 Year
  Sex: Male

DRUGS (5)
  1. DONANEMAB [Suspect]
     Active Substance: DONANEMAB
     Indication: Product used for unknown indication
     Dosage: UNK, UNKNOWN (1ST INFUSION)
     Route: 065
  2. DONANEMAB [Suspect]
     Active Substance: DONANEMAB
     Dosage: UNK, UNKNOWN (2ND INFUSION, LOWER DOSE)
     Route: 065
  3. DONANEMAB [Suspect]
     Active Substance: DONANEMAB
     Dosage: UNK, UNKNOWN (3RD INFUSION, LOWER DOSE)
     Route: 065
  4. DONANEMAB [Suspect]
     Active Substance: DONANEMAB
     Dosage: UNK, UNKNOWN (INFUSION ONLY FOR 3 MINS)
     Route: 065
  5. DONANEMAB [Suspect]
     Active Substance: DONANEMAB
     Dosage: UNK, UNKNOWN (4TH INFUSION, DOUBLE DOSE)
     Route: 065

REACTIONS (20)
  - Cerebrovascular accident [Unknown]
  - Seizure [Recovered/Resolved]
  - Feeling abnormal [Not Recovered/Not Resolved]
  - Disorientation [Unknown]
  - Ocular discomfort [Unknown]
  - Tremor [Recovered/Resolved]
  - Pain [Recovering/Resolving]
  - Dizziness [Recovering/Resolving]
  - Erythema [Recovering/Resolving]
  - Gait disturbance [Recovering/Resolving]
  - Eyelid ptosis [Recovering/Resolving]
  - Visual impairment [Recovering/Resolving]
  - Asthenia [Recovered/Resolved]
  - Dizziness postural [Not Recovered/Not Resolved]
  - Diarrhoea [Recovered/Resolved]
  - Decreased activity [Not Recovered/Not Resolved]
  - Dysstasia [Recovered/Resolved]
  - Flushing [Unknown]
  - Headache [Not Recovered/Not Resolved]
  - Infusion related reaction [Recovered/Resolved]

NARRATIVE: CASE EVENT DATE: 20250926
